FAERS Safety Report 6841824-0 (Version None)
Quarter: 2010Q3

REPORT INFORMATION
  Report Type: 
  Country: None (occurrence: None)
  Receive Date: 20100714
  Receipt Date: 20070716
  Transmission Date: 20110219
  Serious: No
  Sender: FDA-Public Use
  Company Number: US-PFIZER INC-2007060216

PATIENT
  Sex: Female
  Weight: 51.7 kg

DRUGS (5)
  1. CHANTIX [Suspect]
     Indication: SMOKING CESSATION THERAPY
     Dates: start: 20070501, end: 20070525
  2. PLAVIX [Concomitant]
  3. LASIX [Concomitant]
  4. PROTONIX [Concomitant]
     Dates: start: 20060101
  5. VITAMINS [Concomitant]

REACTIONS (5)
  - ABDOMINAL DISTENSION [None]
  - CONSTIPATION [None]
  - FEELING ABNORMAL [None]
  - FLATULENCE [None]
  - UNEVALUABLE EVENT [None]
